FAERS Safety Report 6460648 (Version 20)
Quarter: 2014Q1

REPORT INFORMATION
  Report Type: Spontaneous
  Country: US (occurrence: US)
  Receive Date: 20071107
  Receipt Date: 20140106
  Transmission Date: 20141002
  Serious: Yes (Other)
  Sender: FDA-Public Use
  Company Number: PHEH2007US14412

PATIENT
  Age: 54 Year
  Sex: Female
  Weight: 67.12 kg

DRUGS (30)
  1. LASIX [Concomitant]
  2. ATIVAN [Concomitant]
  3. DECADRON [Concomitant]
  4. PEPCID [Concomitant]
  5. ZOFRAN [Concomitant]
  6. MEDROL [Concomitant]
  7. ERYTHROPOIETIN [Concomitant]
  8. PAXIL [Concomitant]
  9. FLEXERIL [Concomitant]
  10. ALPRAZOLAM [Concomitant]
  11. AREDIA [Suspect]
     Indication: BREAST CANCER
     Dates: start: 1999, end: 2004
  12. AREDIA [Suspect]
     Route: 042
  13. ZOMETA [Suspect]
     Dates: start: 2004, end: 2005
  14. FEMARA [Concomitant]
     Indication: BREAST CANCER
  15. EFFEXOR [Concomitant]
  16. TAXOL [Concomitant]
  17. TAXOTERE [Concomitant]
  18. XELODA [Concomitant]
  19. NOLVADEX ^ASTRAZENECA^ [Concomitant]
  20. NAVELBINE ^ASTA MEDICA^ [Concomitant]
  21. GEMZAR [Concomitant]
  22. TAMOXIFEN [Concomitant]
  23. PERCOCET [Concomitant]
  24. LORTAB [Concomitant]
  25. TYLENOL [Concomitant]
  26. OXYCONTIN [Concomitant]
  27. COUMADIN [Concomitant]
     Dosage: 1 MG, QD
  28. PROZAC [Concomitant]
     Dosage: 20 MG, QD
  29. TYKERB [Concomitant]
  30. MIRALAX [Concomitant]

REACTIONS (97)
  - Metastases to bone [Unknown]
  - Metastases to lung [Unknown]
  - Metastases to liver [Unknown]
  - Hepatic lesion [Unknown]
  - Hepatic neoplasm [Unknown]
  - Hepatic cyst [Unknown]
  - Metastases to ovary [Unknown]
  - Metastases to lymph nodes [Unknown]
  - Osteonecrosis of jaw [Unknown]
  - Toothache [Unknown]
  - Dental caries [Unknown]
  - Tooth erosion [Unknown]
  - Injury [Unknown]
  - Pain [Unknown]
  - Anxiety [Unknown]
  - Tooth fracture [Unknown]
  - Gingivitis [Unknown]
  - Periodontal disease [Unknown]
  - Anhedonia [Unknown]
  - Tooth loss [Unknown]
  - Stomatitis [Unknown]
  - Gingival disorder [Unknown]
  - Tooth disorder [Unknown]
  - Atelectasis [Unknown]
  - Pathological fracture [Unknown]
  - Dizziness [Unknown]
  - Vomiting [Unknown]
  - Cyst [Unknown]
  - Dyspnoea [Unknown]
  - Rectal haemorrhage [Unknown]
  - Thrombocytopenia [Unknown]
  - Traumatic intracranial haemorrhage [Unknown]
  - Fall [Unknown]
  - Spinal compression fracture [Unknown]
  - Pleural effusion [Unknown]
  - Cerebral atrophy [Unknown]
  - Cerebral haematoma [Unknown]
  - Spinal osteoarthritis [Unknown]
  - Femur fracture [Unknown]
  - Tenosynovitis [Unknown]
  - Myalgia [Unknown]
  - Bursitis [Unknown]
  - Renal cyst [Unknown]
  - Tendon disorder [Unknown]
  - Skin lesion [Unknown]
  - Pollakiuria [Unknown]
  - Vulvovaginal dryness [Unknown]
  - Sinus disorder [Unknown]
  - Local swelling [Unknown]
  - Paraesthesia [Unknown]
  - Weight decreased [Unknown]
  - Hypoaesthesia [Unknown]
  - Fatigue [Unknown]
  - Asthenia [Unknown]
  - Bone pain [Unknown]
  - Alopecia [Unknown]
  - Anaemia [Unknown]
  - Hot flush [Unknown]
  - Abdominal pain [Unknown]
  - Haematuria [Unknown]
  - Ovarian mass [Unknown]
  - Nail disorder [Unknown]
  - Pruritus [Unknown]
  - Dry skin [Unknown]
  - Headache [Unknown]
  - Dry eye [Unknown]
  - Visual acuity reduced [Unknown]
  - Diarrhoea [Unknown]
  - Amnesia [Unknown]
  - Dysgeusia [Unknown]
  - Dyspepsia [Unknown]
  - Arthralgia [Unknown]
  - Pancytopenia [Unknown]
  - Hypertension [Unknown]
  - Confusional state [Unknown]
  - Intervertebral disc protrusion [Unknown]
  - Osteomyelitis [Unknown]
  - Contusion [Unknown]
  - Subdural haematoma [Unknown]
  - Intervertebral disc degeneration [Unknown]
  - Upper limb fracture [Unknown]
  - Hip fracture [Unknown]
  - Pain in jaw [Unknown]
  - Bone swelling [Unknown]
  - Facial pain [Unknown]
  - Breast cancer [Unknown]
  - Malignant neoplasm progression [Unknown]
  - Spinal cord compression [Unknown]
  - Intervertebral disc space narrowing [Unknown]
  - Vertebral foraminal stenosis [Unknown]
  - Osteolysis [Unknown]
  - Rotator cuff syndrome [Unknown]
  - Cardiomegaly [Unknown]
  - Osteoarthritis [Unknown]
  - Mental status changes [Unknown]
  - Dysphagia [Unknown]
  - Exposed bone in jaw [Unknown]
